FAERS Safety Report 12784398 (Version 1)
Quarter: 2016Q3

REPORT INFORMATION
  Report Type: Report from Study
  Country: JP (occurrence: JP)
  Receive Date: 20160927
  Receipt Date: 20160927
  Transmission Date: 20161109
  Serious: Yes (Other)
  Sender: FDA-Public Use
  Company Number: JP-BEH-2012033243

PATIENT
  Sex: Male

DRUGS (2)
  1. TERLIPRESSIN [Suspect]
     Active Substance: TERLIPRESSIN
     Indication: HEPATORENAL SYNDROME
     Dosage: 1MG PER 8HRS ON 1 DAY (TOTAL OF 2 DOSES, TREATMENT DISCONTINUED ON 1ST DAY OF THERAPY))
     Route: 042
  2. ALBUMIN 25% [Suspect]
     Active Substance: ALBUMIN HUMAN
     Indication: HEPATORENAL SYNDROME
     Dosage: INJECTION 12.5G / 50ML
     Route: 042

REACTIONS (4)
  - Diarrhoea [Recovered/Resolved]
  - Hypokalaemia [Recovering/Resolving]
  - Pulmonary oedema [Unknown]
  - Thrombocytopenia [Recovering/Resolving]
